FAERS Safety Report 26070119 (Version 1)
Quarter: 2025Q4

REPORT INFORMATION
  Report Type: Report from Study
  Country: US (occurrence: US)
  Receive Date: 20251120
  Receipt Date: 20251120
  Transmission Date: 20260117
  Serious: Yes (Hospitalization, Other)
  Sender: TG THERAPEUTICS
  Company Number: US-TG THERAPEUTICS INC.-TGT006551

PATIENT

DRUGS (2)
  1. UBLITUXIMAB [Suspect]
     Active Substance: UBLITUXIMAB
     Indication: Relapsing multiple sclerosis
     Dosage: 150 MILLIGRAM
     Route: 042
     Dates: start: 20250318, end: 20250318
  2. UBLITUXIMAB [Suspect]
     Active Substance: UBLITUXIMAB
     Dosage: 450 MILLIGRAM
     Route: 042
     Dates: start: 20250918, end: 20250918

REACTIONS (2)
  - Seizure [Not Recovered/Not Resolved]
  - Disorientation [Not Recovered/Not Resolved]

NARRATIVE: CASE EVENT DATE: 20251001
